FAERS Safety Report 18377097 (Version 2)
Quarter: 2020Q4

REPORT INFORMATION
  Report Type: Spontaneous
  Country: CH (occurrence: CH)
  Receive Date: 20201013
  Receipt Date: 20201218
  Transmission Date: 20210114
  Serious: Yes (Hospitalization)
  Sender: FDA-Public Use
  Company Number: CH-JNJFOC-20201006584

PATIENT
  Age: 57 Year
  Sex: Female
  Weight: 63 kg

DRUGS (8)
  1. TRITTICO [Suspect]
     Active Substance: TRAZODONE HYDROCHLORIDE
     Route: 048
  2. STELARA [Suspect]
     Active Substance: USTEKINUMAB
     Route: 058
     Dates: start: 20170705
  3. VITAMIN D3 [Suspect]
     Active Substance: CHOLECALCIFEROL
     Route: 048
     Dates: start: 201905
  4. CALCIMAGON D3 [Suspect]
     Active Substance: CALCIUM\CHOLECALCIFEROL
     Route: 048
     Dates: start: 201905
  5. STELARA [Suspect]
     Active Substance: USTEKINUMAB
     Indication: PSORIASIS
     Route: 058
     Dates: start: 20141027, end: 20170412
  6. LYRICA [Suspect]
     Active Substance: PREGABALIN
     Route: 048
  7. SEMAGLUTIDE [Suspect]
     Active Substance: SEMAGLUTIDE
     Route: 058
  8. CYMBALTA [Suspect]
     Active Substance: DULOXETINE HYDROCHLORIDE
     Route: 048

REACTIONS (2)
  - Cataract nuclear [Unknown]
  - Vitreous opacities [Unknown]
